FAERS Safety Report 14457689 (Version 1)
Quarter: 2018Q1

REPORT INFORMATION
  Report Type: Spontaneous
  Country: MX (occurrence: MX)
  Receive Date: 20180130
  Receipt Date: 20180130
  Transmission Date: 20180509
  Serious: Yes (Other)
  Sender: FDA-Public Use
  Company Number: MX-MACLEODS PHARMACEUTICALS US LTD-MAC2018008971

PATIENT

DRUGS (2)
  1. CANDESARTAN. [Suspect]
     Active Substance: CANDESARTAN
     Indication: HYPERTENSION
     Dosage: 8 MG, QD
     Route: 065
  2. CANDESARTAN. [Suspect]
     Active Substance: CANDESARTAN
     Dosage: 16 MG, QD
     Route: 065

REACTIONS (2)
  - Hepatotoxicity [Recovered/Resolved]
  - Hepatocellular injury [Recovered/Resolved]
